FAERS Safety Report 9382359 (Version 2)
Quarter: 2013Q3

REPORT INFORMATION
  Report Type: Report from Study
  Country: GB (occurrence: GB)
  Receive Date: 20130703
  Receipt Date: 20130814
  Transmission Date: 20140515
  Serious: Yes (Other)
  Sender: FDA-Public Use
  Company Number: GB-B.I. PHARMACEUTICALS,INC./RIDGEFIELD-2013-BI-18857BP

PATIENT
  Age: 40 Year
  Sex: Female

DRUGS (2)
  1. VIRAMUNE [Suspect]
     Indication: ANTIVIRAL TREATMENT
     Dosage: 400 MG
     Route: 048
  2. EPZICOM [Concomitant]
     Indication: ANTIVIRAL TREATMENT
     Route: 048

REACTIONS (1)
  - Abortion spontaneous [Unknown]
